FAERS Safety Report 7747436 (Version 20)
Quarter: 2020Q3

REPORT INFORMATION
  Report Type: Spontaneous
  Country: US (occurrence: US)
  Receive Date: 20110104
  Receipt Date: 20200906
  Transmission Date: 20201103
  Serious: Yes (Other)
  Sender: FDA-Public Use
  Company Number: US-SANOFI-AVENTIS-2010SA078355

PATIENT

DRUGS (21)
  1. MULTAQ [Suspect]
     Active Substance: DRONEDARONE
     Indication: ATRIAL FLUTTER
     Dosage: 400 MG,BID
     Route: 048
     Dates: start: 20101125
  2. MULTAQ [Suspect]
     Active Substance: DRONEDARONE
     Dosage: 400 MG,BID
     Route: 048
     Dates: start: 20101125
  3. MULTAQ [Suspect]
     Active Substance: DRONEDARONE
     Dosage: 400 MG,BID
     Route: 048
     Dates: start: 20101125
  4. ALPRAZOLAM. [Concomitant]
     Active Substance: ALPRAZOLAM
     Dosage: .5 MG,BID
  5. ALPRAZOLAM. [Concomitant]
     Active Substance: ALPRAZOLAM
     Dosage: 1 MG,QD
  6. ATORVASTATIN [Concomitant]
     Active Substance: ATORVASTATIN
     Dosage: 10 MG,UNK
  7. CALCIUM CARBONATE;ERGOCALCIFEROL [Concomitant]
  8. ROSUVASTATIN CALCIUM. [Concomitant]
     Active Substance: ROSUVASTATIN CALCIUM
     Dosage: 5 MG,UNK
     Dates: start: 2011
  9. MULTAQ [Suspect]
     Active Substance: DRONEDARONE
     Dosage: 400 MG,BID
     Route: 048
     Dates: start: 20101125
  10. ACETYLSALICYLIC ACID [Concomitant]
     Active Substance: ASPIRIN
     Dosage: 325 MG,UNK
     Route: 048
  11. MULTAQ [Suspect]
     Active Substance: DRONEDARONE
     Dosage: 400 MG,BID
     Route: 048
     Dates: start: 20101125
  12. MULTAQ [Suspect]
     Active Substance: DRONEDARONE
     Dosage: 400 MG,BID
     Route: 048
     Dates: start: 20101125
  13. MULTAQ [Suspect]
     Active Substance: DRONEDARONE
     Dosage: 400 MG,BID
     Route: 048
     Dates: start: 20101125
  14. ACETYLSALICYLIC ACID [Concomitant]
     Active Substance: ASPIRIN
     Dosage: 325 MG,UNK
     Route: 048
     Dates: start: 201101
  15. MULTAQ [Suspect]
     Active Substance: DRONEDARONE
     Indication: ATRIAL FIBRILLATION
     Dosage: 400 MG, BID
     Dates: start: 2010
  16. ALPRAZOLAM. [Concomitant]
     Active Substance: ALPRAZOLAM
     Indication: ANXIETY
     Dosage: .25 MG,BID
  17. XANAX [Concomitant]
     Active Substance: ALPRAZOLAM
     Indication: ANXIETY
  18. MULTAQ [Suspect]
     Active Substance: DRONEDARONE
     Dosage: 400 MG,BID
     Route: 048
     Dates: start: 20101125
  19. MULTAQ [Suspect]
     Active Substance: DRONEDARONE
     Dosage: 400 MG,BID
     Route: 048
     Dates: start: 20101125
  20. FISH OIL [Concomitant]
     Active Substance: FISH OIL
  21. ACTONEL [Concomitant]
     Active Substance: RISEDRONATE SODIUM
     Dosage: 35 MG,QW
     Route: 065
     Dates: end: 2011

REACTIONS (31)
  - Eye pain [Not Recovered/Not Resolved]
  - Tension headache [Not Recovered/Not Resolved]
  - Rash erythematous [Recovered/Resolved]
  - Product complaint [Unknown]
  - Anxiety [Unknown]
  - Atrial fibrillation [Unknown]
  - Skin exfoliation [Recovered/Resolved]
  - Heart rate increased [Recovered/Resolved]
  - Pulmonary mass [Unknown]
  - Circadian rhythm sleep disorder [Unknown]
  - Nervousness [Unknown]
  - Generalised anxiety disorder [Not Recovered/Not Resolved]
  - Angle closure glaucoma [Not Recovered/Not Resolved]
  - Eye disorder [Unknown]
  - Heart rate irregular [Not Recovered/Not Resolved]
  - Nightmare [Unknown]
  - Intervertebral disc protrusion [Not Recovered/Not Resolved]
  - Back pain [Not Recovered/Not Resolved]
  - Pulmonary function test abnormal [Unknown]
  - Depression [Unknown]
  - Heart rate decreased [Unknown]
  - Constipation [Not Recovered/Not Resolved]
  - Blepharospasm [Not Recovered/Not Resolved]
  - Visual impairment [Not Recovered/Not Resolved]
  - Wheezing [Unknown]
  - Pulmonary fibrosis [Unknown]
  - Blood glucose increased [Unknown]
  - Tooth infection [Not Recovered/Not Resolved]
  - Pleural fibrosis [Unknown]
  - Pain in extremity [Not Recovered/Not Resolved]
  - Osteoporosis [Not Recovered/Not Resolved]

NARRATIVE: CASE EVENT DATE: 20101222
